FAERS Safety Report 9561205 (Version 2)
Quarter: 2013Q3

REPORT INFORMATION
  Report Type: Spontaneous
  Country: IT (occurrence: IT)
  Receive Date: 20130927
  Receipt Date: 20130927
  Transmission Date: 20140515
  Serious: Yes (Death)
  Sender: FDA-Public Use
  Company Number: IT-SANOFI-AVENTIS-CERZ-1003108

PATIENT
  Age: 61 Year
  Sex: Female

DRUGS (1)
  1. CEREZYME [Suspect]
     Indication: GAUCHER^S DISEASE
     Dosage: 2000 U, Q2W DOSE:60 UNIT(S)/KILOGRAM BODYWEIGHT
     Route: 042
     Dates: end: 20130613

REACTIONS (1)
  - Cardiac failure [Fatal]
